FAERS Safety Report 15636583 (Version 2)
Quarter: 2018Q4

REPORT INFORMATION
  Report Type: Spontaneous
  Country: RU (occurrence: RU)
  Receive Date: 20181120
  Receipt Date: 20181121
  Transmission Date: 20190205
  Serious: Yes (Hospitalization)
  Sender: FDA-Public Use
  Company Number: RU-TEVA-2018-RU-978430

PATIENT
  Age: 15 Year
  Sex: Male

DRUGS (2)
  1. FOSICARD 10 MG [Suspect]
     Active Substance: FOSINOPRIL
     Indication: HYPERTENSION
     Route: 065
  2. BISOPROLOL 0, 25 MG [Concomitant]
     Indication: HYPERTENSION

REACTIONS (1)
  - Blood pressure increased [Recovered/Resolved]
